FAERS Safety Report 9735536 (Version 2)
Quarter: 2015Q3

REPORT INFORMATION
  Report Type: Spontaneous
  Country: US (occurrence: US)
  Receive Date: 20131206
  Receipt Date: 20150804
  Transmission Date: 20151125
  Serious: Yes (Hospitalization)
  Sender: FDA-Public Use
  Company Number: US-GILEAD-2009-0023608

PATIENT
  Age: 70 Year
  Sex: Female
  Weight: 43.09 kg

DRUGS (12)
  1. PRILOSEC [Concomitant]
     Active Substance: OMEPRAZOLE MAGNESIUM
  2. TRIAMT/HCTZ [Concomitant]
     Active Substance: HYDROCHLOROTHIAZIDE\TRIAMTERENE
  3. DIOVAN [Concomitant]
     Active Substance: VALSARTAN
  4. ATENOLOL. [Concomitant]
     Active Substance: ATENOLOL
  5. PROVENTIL [Concomitant]
     Active Substance: ALBUTEROL
  6. AZATHIOPRINE. [Concomitant]
     Active Substance: AZATHIOPRINE
  7. PREDNISONE. [Concomitant]
     Active Substance: PREDNISONE
  8. DARVOCET-N 100 [Concomitant]
     Active Substance: ACETAMINOPHEN\PROPOXYPHENE NAPSYLATE
  9. LETAIRIS [Suspect]
     Active Substance: AMBRISENTAN
     Indication: PULMONARY ARTERIAL HYPERTENSION
     Route: 048
     Dates: start: 20090709, end: 20090806
  10. ASPIRIN. [Concomitant]
     Active Substance: ASPIRIN
  11. ADVAIR DISKUS [Concomitant]
     Active Substance: FLUTICASONE PROPIONATE\SALMETEROL XINAFOATE
  12. NAPROXEN EC [Concomitant]
     Active Substance: NAPROXEN

REACTIONS (2)
  - Fluid retention [Recovering/Resolving]
  - Dyspnoea [Recovering/Resolving]

NARRATIVE: CASE EVENT DATE: 20090807
